FAERS Safety Report 8546607-1 (Version None)
Quarter: 2012Q3

REPORT INFORMATION
  Report Type: 
  Country: None (occurrence: None)
  Receive Date: 20120727
  Receipt Date: 20111230
  Transmission Date: 20120928
  Serious: No
  Sender: FDA-Public Use
  Company Number: US-ASTRAZENECA-2012SE00082

PATIENT
  Age: 47 Year
  Sex: Male
  Weight: 60.3 kg

DRUGS (1)
  1. SEROQUEL [Suspect]
     Indication: BIPOLAR DISORDER
     Route: 048
     Dates: start: 20110901, end: 20111101

REACTIONS (4)
  - ANXIETY DISORDER [None]
  - HEART RATE IRREGULAR [None]
  - MUSCLE DISORDER [None]
  - DISTURBANCE IN ATTENTION [None]
